FAERS Safety Report 7389419-7 (Version None)
Quarter: 2011Q2

REPORT INFORMATION
  Report Type: 
  Country: None (occurrence: None)
  Receive Date: 20110401
  Receipt Date: 20110318
  Transmission Date: 20111010
  Serious: Yes (Other)
  Sender: FDA-Public Use
  Company Number: CHPA2011US04253

PATIENT
  Age: 67 Year
  Sex: Female
  Weight: 54.422 kg

DRUGS (1)
  1. VOLTAREN [Suspect]
     Indication: FOOT OPERATION
     Dosage: LITTLE BIT 4 TIMES A DAY
     Route: 061
     Dates: start: 20110101, end: 20110101

REACTIONS (3)
  - WRONG TECHNIQUE IN DRUG USAGE PROCESS [None]
  - SURGERY [None]
  - OFF LABEL USE [None]
